FAERS Safety Report 5368462-3 (Version None)
Quarter: 2007Q2

REPORT INFORMATION
  Report Type: 
  Country: None (occurrence: None)
  Receive Date: 20070625
  Receipt Date: 20070611
  Transmission Date: 20071010
  Serious: Yes (Hospitalization, Other)
  Sender: FDA-Public Use
  Company Number: CA-ELI_LILLY_AND_COMPANY-CA200610004406

PATIENT
  Age: 68 Year
  Sex: Female

DRUGS (8)
  1. FORTEO [Suspect]
     Indication: OSTEOPOROSIS
     Dosage: 20 UG, OTHER
     Dates: start: 20051001, end: 20060201
  2. FORTEO [Suspect]
     Dosage: 20 UG, DAILY (1/D)
     Dates: start: 20060228, end: 20060415
  3. APO-TRIAZIDE [Concomitant]
  4. AMLODIPINE BESYLATE [Concomitant]
  5. CALCIUM CHLORIDE [Concomitant]
  6. VITAMIN D [Concomitant]
  7. WARFARIN SODIUM [Concomitant]
  8. VITAMINS NOS [Concomitant]

REACTIONS (3)
  - ABDOMINAL PAIN LOWER [None]
  - INSOMNIA [None]
  - LUNG NEOPLASM MALIGNANT [None]
